FAERS Safety Report 19847701 (Version 1)
Quarter: 2021Q3

REPORT INFORMATION
  Report Type: Spontaneous
  Country: NO (occurrence: NO)
  Receive Date: 20210917
  Receipt Date: 20210917
  Transmission Date: 20211014
  Serious: Yes (Hospitalization)
  Sender: FDA-Public Use
  Company Number: NO-TEVA-2021-NO-1952798

PATIENT
  Age: 32 Year
  Sex: Male

DRUGS (1)
  1. QUETIAPINE TEVA [Suspect]
     Active Substance: QUETIAPINE
     Indication: INSOMNIA
     Dosage: 100?125 MG X 1 DOSE INCREASED FEW DAYS BEFORE ADMITTANCE TO HOSPITAL
     Route: 048
     Dates: start: 20210628

REACTIONS (2)
  - Generalised tonic-clonic seizure [Recovering/Resolving]
  - Rhabdomyolysis [Recovering/Resolving]

NARRATIVE: CASE EVENT DATE: 20210805
